FAERS Safety Report 10098462 (Version 2)
Quarter: 2014Q2

REPORT INFORMATION
  Report Type: Spontaneous
  Country: FR (occurrence: FR)
  Receive Date: 20140423
  Receipt Date: 20140423
  Transmission Date: 20141212
  Serious: Yes (Life-Threatening, Hospitalization)
  Sender: FDA-Public Use
  Company Number: FR-JNJFOC-20140406601

PATIENT
  Age: 74 Year
  Sex: Female

DRUGS (9)
  1. XARELTO [Suspect]
     Indication: ARRHYTHMIA SUPRAVENTRICULAR
     Route: 048
     Dates: start: 20140225, end: 20140302
  2. OFLOXACIN [Suspect]
     Indication: PRODUCT USED FOR UNKNOWN INDICATION
     Route: 048
     Dates: start: 20140225
  3. CORDARONE [Concomitant]
     Route: 065
  4. LASILIX [Concomitant]
     Route: 065
  5. TRIATEC [Concomitant]
     Route: 065
  6. BISOPROLOL [Concomitant]
     Route: 065
  7. CARDENSIEL [Concomitant]
     Dosage: OM
     Route: 065
  8. INEXIUM [Concomitant]
     Route: 065
  9. TARDYFERON [Concomitant]
     Route: 065

REACTIONS (3)
  - Shock haemorrhagic [Recovered/Resolved]
  - Rectal haemorrhage [Recovered/Resolved]
  - Cardiac failure [Recovered/Resolved]
